FAERS Safety Report 16200097 (Version 2)
Quarter: 2019Q3

REPORT INFORMATION
  Report Type: Spontaneous
  Country: US (occurrence: US)
  Receive Date: 20190415
  Receipt Date: 20190717
  Transmission Date: 20191004
  Serious: No
  Sender: FDA-Public Use
  Company Number: US-JNJFOC-20190341069

PATIENT
  Sex: Female

DRUGS (1)
  1. TREMFYA [Suspect]
     Active Substance: GUSELKUMAB
     Indication: PSORIASIS
     Route: 058

REACTIONS (7)
  - Unevaluable event [Unknown]
  - Syringe issue [Unknown]
  - Muscle disorder [Unknown]
  - Accidental exposure to product [Unknown]
  - Throat irritation [Not Recovered/Not Resolved]
  - Product dose omission [Not Recovered/Not Resolved]
  - Psoriasis [Not Recovered/Not Resolved]
